FAERS Safety Report 11635291 (Version 7)
Quarter: 2022Q2

REPORT INFORMATION
  Report Type: Spontaneous
  Country: BR (occurrence: BR)
  Receive Date: 20151015
  Receipt Date: 20220506
  Transmission Date: 20220721
  Serious: Yes (Other)
  Sender: FDA-Public Use
  Company Number: BR-DSJP-DSU-2015-131847

PATIENT
  Sex: Female

DRUGS (14)
  1. OLMESARTAN MEDOXOMIL [Suspect]
     Active Substance: OLMESARTAN MEDOXOMIL
     Indication: Blood pressure inadequately controlled
     Dosage: 20 MG
     Route: 065
  2. OLMESARTAN MEDOXOMIL [Suspect]
     Active Substance: OLMESARTAN MEDOXOMIL
     Dosage: 40 MG
     Route: 065
     Dates: start: 20200909
  3. OLMESARTAN MEDOXOMIL [Suspect]
     Active Substance: OLMESARTAN MEDOXOMIL
     Dosage: 40 MG
     Route: 065
     Dates: start: 20200909
  4. OLMESARTAN MEDOXOMIL [Suspect]
     Active Substance: OLMESARTAN MEDOXOMIL
     Dosage: 40 MG, QD
     Route: 065
  5. BISOPROLOL FUMARATE\HYDROCHLOROTHIAZIDE [Suspect]
     Active Substance: BISOPROLOL FUMARATE\HYDROCHLOROTHIAZIDE
     Indication: Blood pressure inadequately controlled
     Dosage: 2.5 MG
     Route: 065
  6. BISOPROLOL FUMARATE\HYDROCHLOROTHIAZIDE [Suspect]
     Active Substance: BISOPROLOL FUMARATE\HYDROCHLOROTHIAZIDE
     Dosage: 5 UNK
     Route: 065
  7. AMLODIPINE BESYLATE [Suspect]
     Active Substance: AMLODIPINE BESYLATE
     Indication: Blood pressure inadequately controlled
     Dosage: UNK
     Route: 065
  8. ALDACTONE                          /00006201/ [Concomitant]
     Indication: Product used for unknown indication
     Dosage: UNK
     Route: 065
  9. BROMAZEPAM [Concomitant]
     Active Substance: BROMAZEPAM
     Indication: Product used for unknown indication
     Dosage: 0.5 DF, UNK
     Route: 065
  10. TAPAZOL                            /00022901/ [Concomitant]
     Indication: Hyperthyroidism
     Dosage: UNK
     Route: 065
  11. CAPTOPRIL [Concomitant]
     Active Substance: CAPTOPRIL
     Indication: Product used for unknown indication
     Dosage: UNK
     Route: 060
  12. INDAPAMIDE [Concomitant]
     Active Substance: INDAPAMIDE
     Indication: Product used for unknown indication
     Dosage: UNK
     Route: 065
  13. BISOPROLOL FUMARATE [Concomitant]
     Active Substance: BISOPROLOL FUMARATE
     Indication: Product used for unknown indication
     Dosage: UNK
     Route: 065
  14. INDAPAMIDE [Concomitant]
     Active Substance: INDAPAMIDE
     Indication: Product used for unknown indication
     Dosage: UNK
     Route: 065

REACTIONS (34)
  - Autoimmune thyroiditis [Unknown]
  - Asthenia [Unknown]
  - Weight decreased [Unknown]
  - Uterine disorder [Unknown]
  - Rheumatoid arthritis [Unknown]
  - Tachycardia [Unknown]
  - Hyperthyroidism [Unknown]
  - Hypothyroidism [Unknown]
  - Peripheral swelling [Unknown]
  - Hypoaesthesia [Unknown]
  - Swelling of eyelid [Unknown]
  - Swelling face [Unknown]
  - Drug ineffective [Unknown]
  - Visual impairment [Not Recovered/Not Resolved]
  - Psoriasis [Unknown]
  - Retinal tear [Unknown]
  - Cataract [Unknown]
  - Varicose vein [Unknown]
  - Tremor [Unknown]
  - Emotional distress [Unknown]
  - Urinary tract infection [Unknown]
  - Muscular weakness [Unknown]
  - Tinnitus [Unknown]
  - Nausea [Unknown]
  - Retinal disorder [Unknown]
  - Oedema [Unknown]
  - Hypertensive crisis [Unknown]
  - Chest pain [Unknown]
  - Osteoarthritis [Unknown]
  - Spinal pain [Unknown]
  - Emotional disorder [Unknown]
  - Pruritus [Unknown]
  - Discouragement [Unknown]
  - Blood pressure fluctuation [Unknown]

NARRATIVE: CASE EVENT DATE: 20020101
